FAERS Safety Report 19636385 (Version 1)
Quarter: 2021Q3

REPORT INFORMATION
  Report Type: Spontaneous
  Country: US (occurrence: US)
  Receive Date: 20210729
  Receipt Date: 20210729
  Transmission Date: 20211014
  Serious: No
  Sender: FDA-Public Use
  Company Number: US-PERRIGO-20US014322

PATIENT
  Age: 34 Year
  Sex: Male
  Weight: 74.83 kg

DRUGS (2)
  1. VITAFUSION CALCIUM [Concomitant]
     Active Substance: CALCIUM PHOSPHATE\CHOLECALCIFEROL
     Indication: SUPPLEMENTATION THERAPY
     Dosage: UNK
     Route: 065
     Dates: start: 2017
  2. MINOXIDIL. [Suspect]
     Active Substance: MINOXIDIL
     Indication: ALOPECIA
     Dosage: 1 ML, BID
     Route: 061
     Dates: start: 202002, end: 20200930

REACTIONS (4)
  - Application site rash [Recovered/Resolved]
  - Skin sensitisation [Recovering/Resolving]
  - Drug ineffective [Unknown]
  - Application site dryness [Recovering/Resolving]

NARRATIVE: CASE EVENT DATE: 202002
